FAERS Safety Report 5341556-4 (Version None)
Quarter: 2007Q2

REPORT INFORMATION
  Report Type: 
  Country: None (occurrence: None)
  Receive Date: 20070529
  Receipt Date: 20070529
  Transmission Date: 20071010
  Serious: Yes (Life-Threatening, Hospitalization, Disabling)
  Sender: FDA-Public Use
  Company Number: None

PATIENT
  Sex: Female

DRUGS (1)
  1. SANCTURA [Suspect]
     Indication: STRESS URINARY INCONTINENCE
     Dosage: 20 MG BID PO
     Route: 048
     Dates: start: 20070404, end: 20070405

REACTIONS (6)
  - ABDOMINAL DISTENSION [None]
  - BLOOD PRESSURE SYSTOLIC DECREASED [None]
  - CONSTIPATION [None]
  - HEART RATE INCREASED [None]
  - INTESTINAL ISCHAEMIA [None]
  - RENAL FAILURE [None]
